FAERS Safety Report 8904766 (Version 2)
Quarter: 2012Q4

REPORT INFORMATION
  Report Type: 
  Country: JP (occurrence: JP)
  Receive Date: 20121113
  Receipt Date: 20121127
  Transmission Date: 20130627
  Serious: Yes (Hospitalization)
  Sender: FDA-Public Use
  Company Number: JP-JNJFOC-20121014216

PATIENT
  Age: 70 Year
  Sex: Male

DRUGS (8)
  1. REMICADE [Suspect]
     Indication: ARTHRITIS
     Dosage: first dose
     Route: 042
     Dates: start: 20120706
  2. REMICADE [Suspect]
     Indication: ARTHRITIS
     Dosage: third dose
     Route: 042
     Dates: start: 20120821
  3. REMICADE [Suspect]
     Indication: PSORIASIS
     Dosage: first dose
     Route: 042
     Dates: start: 20120706
  4. REMICADE [Suspect]
     Indication: PSORIASIS
     Dosage: third dose
     Route: 042
     Dates: start: 20120821
  5. HUMIRA [Concomitant]
     Indication: PSORIASIS
     Route: 065
     Dates: start: 20120208
  6. HUMIRA [Concomitant]
     Indication: PSORIASIS
     Route: 065
     Dates: start: 20100602, end: 201108
  7. HUMIRA [Concomitant]
     Indication: ARTHRITIS
     Route: 065
     Dates: start: 20120208
  8. HUMIRA [Concomitant]
     Indication: ARTHRITIS
     Route: 065
     Dates: start: 20100602, end: 201108

REACTIONS (1)
  - Disseminated tuberculosis [Recovering/Resolving]
